FAERS Safety Report 10542384 (Version 1)
Quarter: 2014Q4

REPORT INFORMATION
  Report Type: Spontaneous
  Country: DE (occurrence: DE)
  Receive Date: 20141025
  Receipt Date: 20141025
  Transmission Date: 20150529
  Serious: Yes (Congenital Anomaly)
  Sender: FDA-Public Use
  Company Number: DE-ROXANE LABORATORIES, INC.-2014-RO-01618RO

PATIENT

DRUGS (3)
  1. MOXIFLOXACIN [Suspect]
     Active Substance: MOXIFLOXACIN
     Indication: FOETAL EXPOSURE DURING PREGNANCY
     Route: 065
  2. XIPAMIDE [Suspect]
     Active Substance: XIPAMIDE
     Indication: FOETAL EXPOSURE DURING PREGNANCY
     Route: 065
  3. RAMIPRIL. [Suspect]
     Active Substance: RAMIPRIL
     Indication: FOETAL EXPOSURE DURING PREGNANCY
     Route: 065

REACTIONS (1)
  - Fallot^s tetralogy [Unknown]
